FAERS Safety Report 14186772 (Version 1)
Quarter: 2017Q4

REPORT INFORMATION
  Report Type: Spontaneous
  Country: GB (occurrence: GB)
  Receive Date: 20171114
  Receipt Date: 20171114
  Transmission Date: 20180321
  Serious: Yes (Disabling, Congenital Anomaly, Other)
  Sender: FDA-Public Use
  Company Number: GB-ABBVIE-17P-167-2144640-00

PATIENT

DRUGS (1)
  1. EPILIM [Suspect]
     Active Substance: VALPROATE SODIUM
     Indication: MATERNAL EXPOSURE TIMING UNSPECIFIED
     Route: 064
     Dates: start: 2002

REACTIONS (18)
  - Visual impairment [Unknown]
  - Memory impairment [Unknown]
  - Clumsiness [Unknown]
  - Foot deformity [Not Recovered/Not Resolved]
  - Foetal exposure during pregnancy [Unknown]
  - Hypermetropia [Unknown]
  - Dysgraphia [Unknown]
  - Dyslexia [Unknown]
  - Congenital nose malformation [Unknown]
  - Irlen syndrome [Unknown]
  - Epilepsy [Unknown]
  - Tooth development disorder [Not Recovered/Not Resolved]
  - Lip erythema [Unknown]
  - Dysmorphism [Not Recovered/Not Resolved]
  - Disturbance in social behaviour [Unknown]
  - Autism spectrum disorder [Not Recovered/Not Resolved]
  - Disturbance in attention [Unknown]
  - Learning disorder [Unknown]

NARRATIVE: CASE EVENT DATE: 2004
